FAERS Safety Report 19924277 (Version 1)
Quarter: 2021Q4

REPORT INFORMATION
  Report Type: Spontaneous
  Country: US (occurrence: US)
  Receive Date: 20211006
  Receipt Date: 20211006
  Transmission Date: 20220304
  Serious: Yes (Hospitalization)
  Sender: FDA-Public Use
  Company Number: US-MYLANLABS-2021M1069499

PATIENT
  Age: 52 Year
  Sex: Female

DRUGS (2)
  1. BUPIVACAINE [Suspect]
     Active Substance: BUPIVACAINE
     Indication: Pain
     Dosage: AN INTRATHECAL OPIOID PUMP (MEDTRONIC) WAS PLACED FOUR YEARS WITH AND BUPIVACAINE INFUSIONS
     Route: 037
  2. FENTANYL [Suspect]
     Active Substance: FENTANYL
     Indication: Pain
     Dosage: AN INTRATHECAL OPIOID PUMP (MEDTRONIC) WAS PLACED FOUR YEARS WITH AND BUPIVACAINE INFUSIONS
     Route: 037

REACTIONS (4)
  - Arachnoid web [Recovered/Resolved]
  - Paraesthesia [Recovered/Resolved]
  - Urinary incontinence [Recovered/Resolved]
  - Anal incontinence [Recovered/Resolved]
